FAERS Safety Report 5333733-3 (Version None)
Quarter: 2007Q2

REPORT INFORMATION
  Report Type: 
  Country: None (occurrence: None)
  Receive Date: 20070306
  Receipt Date: 20061109
  Transmission Date: 20071010
  Serious: Yes (Hospitalization)
  Sender: FDA-Public Use
  Company Number: A03200606770

PATIENT
  Age: 91 Year
  Sex: Female
  Weight: 49.89 kg

DRUGS (2)
  1. PLAVIX [Suspect]
     Indication: MYOCARDIAL INFARCTION
     Dosage: 75 MG QD - ORAL
     Route: 048
  2. CARVEDILOL [Concomitant]

REACTIONS (1)
  - MYOCARDIAL INFARCTION [None]
